FAERS Safety Report 10240621 (Version 1)
Quarter: 2014Q2

REPORT INFORMATION
  Report Type: Spontaneous
  Country: US (occurrence: None)
  Receive Date: 20140613
  Receipt Date: 20140613
  Transmission Date: 20141212
  Serious: Yes (Hospitalization)
  Sender: FDA-Public Use
  Company Number: None

PATIENT
  Age: 44 Year
  Sex: Male
  Weight: 68.04 kg

DRUGS (1)
  1. CIPROFLOXACIN [Suspect]
     Indication: PROSTATITIS
     Dosage: 2 PILLS A DAY TWICE DAILY TAKEN BY MOUTH
     Route: 048
     Dates: start: 20131203, end: 20131206

REACTIONS (4)
  - Neuropathy peripheral [None]
  - Hypoaesthesia [None]
  - Insomnia [None]
  - Anxiety [None]
